FAERS Safety Report 5129851-5 (Version None)
Quarter: 2006Q4

REPORT INFORMATION
  Report Type: 
  Country: None (occurrence: None)
  Receive Date: 20061018
  Receipt Date: 20060406
  Transmission Date: 20070319
  Serious: Yes (Other)
  Sender: FDA-Public Use
  Company Number: PHEH2006US04644

PATIENT
  Age: 71 Year
  Sex: Female
  Weight: 60.317 kg

DRUGS (6)
  1. LOTREL [Suspect]
     Indication: HYPERTENSION
     Dosage: 10/20 MG, QD
     Route: 048
     Dates: start: 20060403, end: 20060502
  2. LASIX [Concomitant]
     Dosage: 40 UNK, QD
     Route: 048
  3. LUNESTA [Concomitant]
     Dosage: 3 UNK, QD
     Route: 048
  4. WELLBUTRIN [Concomitant]
     Dosage: 150 UNK, QD
     Route: 048
  5. XANAX [Concomitant]
     Dosage: 0.5 UNK, QD
     Route: 048
  6. TALWIN [Concomitant]
     Dosage: UNK, BID
     Route: 048

REACTIONS (7)
  - HEADACHE [None]
  - HYPERSENSITIVITY [None]
  - MYALGIA [None]
  - NECK PAIN [None]
  - PAIN [None]
  - PAIN IN EXTREMITY [None]
  - TACHYCARDIA [None]
